FAERS Safety Report 21550811 (Version 1)
Quarter: 2022Q4

REPORT INFORMATION
  Report Type: Report from Study
  Country: US (occurrence: US)
  Receive Date: 20221103
  Receipt Date: 20221103
  Transmission Date: 20230112
  Serious: Yes (Other)
  Sender: FDA-Public Use
  Company Number: US-ABBVIE-4185483

PATIENT
  Sex: Female

DRUGS (4)
  1. SKYRIZI [Suspect]
     Active Substance: RISANKIZUMAB-RZAA
     Indication: Psoriasis
     Dosage: 150 MG  WEEK 0
     Route: 058
     Dates: start: 20220503, end: 20220503
  2. SKYRIZI [Suspect]
     Active Substance: RISANKIZUMAB-RZAA
     Indication: Psoriatic arthropathy
     Dosage: WEEK 12
     Route: 058
     Dates: start: 20220823
  3. SKYRIZI [Suspect]
     Active Substance: RISANKIZUMAB-RZAA
     Dosage: WEEK 4
     Route: 058
     Dates: start: 20220531, end: 20220531
  4. LETROZOLE [Suspect]
     Active Substance: LETROZOLE
     Indication: Product used for unknown indication

REACTIONS (9)
  - Breast cancer [Unknown]
  - Ear infection [Recovering/Resolving]
  - Bronchitis [Recovering/Resolving]
  - Diabetes mellitus [Not Recovered/Not Resolved]
  - Chest discomfort [Recovered/Resolved]
  - Decreased appetite [Recovering/Resolving]
  - SARS-CoV-2 test positive [Unknown]
  - Hypertension [Not Recovered/Not Resolved]
  - Dyspnoea [Recovering/Resolving]
